FAERS Safety Report 9294314 (Version 2)
Quarter: 2013Q2

REPORT INFORMATION
  Report Type: Spontaneous
  Country: US (occurrence: US)
  Receive Date: 20130516
  Receipt Date: 20130621
  Transmission Date: 20140414
  Serious: No
  Sender: FDA-Public Use
  Company Number: US-009507513-1305USA010111

PATIENT
  Age: 84 Year
  Sex: Male

DRUGS (2)
  1. CLARITIN [Suspect]
     Indication: PRODUCT USED FOR UNKNOWN INDICATION
     Dosage: 10 MG, QD
     Route: 048
     Dates: start: 20130430
  2. CLARITIN [Suspect]
     Dosage: 10 MG, QD
     Route: 048
     Dates: start: 20130506, end: 20130513

REACTIONS (1)
  - Drug effect decreased [Unknown]
